FAERS Safety Report 22044901 (Version 3)
Quarter: 2023Q1

REPORT INFORMATION
  Report Type: Report from Study
  Country: US (occurrence: US)
  Receive Date: 20230228
  Receipt Date: 20230309
  Transmission Date: 20230418
  Serious: No
  Sender: FDA-Public Use
  Company Number: US-002147023-NVSC2023US045973

PATIENT
  Age: 75 Year
  Sex: Male

DRUGS (3)
  1. CARVEDILOL [Suspect]
     Active Substance: CARVEDILOL
     Indication: Product used for unknown indication
     Dosage: UNK
     Route: 065
     Dates: start: 2016
  2. ENTRESTO [Suspect]
     Active Substance: SACUBITRIL\VALSARTAN
     Indication: Product used for unknown indication
     Dosage: 24/26 MG, BID
     Route: 065
     Dates: start: 20230203
  3. LISINOPRIL [Suspect]
     Active Substance: LISINOPRIL
     Indication: Product used for unknown indication
     Dosage: UNK (WAS STOPPED 3 DAYS PRIOR TO ENTRESTO START)
     Route: 065

REACTIONS (3)
  - Atrial flutter [Recovering/Resolving]
  - Dizziness [Recovered/Resolved]
  - Cardiac monitoring [Unknown]

NARRATIVE: CASE EVENT DATE: 20220801
